FAERS Safety Report 7118038-2 (Version None)
Quarter: 2010Q4

REPORT INFORMATION
  Report Type: 
  Country: None (occurrence: None)
  Receive Date: 20101123
  Receipt Date: 20101112
  Transmission Date: 20110411
  Serious: Yes (Hospitalization)
  Sender: FDA-Public Use
  Company Number: DE-ELI_LILLY_AND_COMPANY-DE200902000067

PATIENT
  Age: 49 Year
  Sex: Male
  Weight: 129 kg

DRUGS (21)
  1. BYETTA [Suspect]
     Indication: TYPE 2 DIABETES MELLITUS
     Dosage: 10 UG, 2/D
     Route: 058
     Dates: start: 20080923, end: 20081016
  2. ENABETA [Concomitant]
     Indication: HYPERTENSION
     Dosage: 10 MG, 2/D
     Route: 048
     Dates: start: 20040101
  3. TOREM [Concomitant]
     Indication: HYPERTENSION
     Dosage: 10 MG, 2/D
     Route: 048
     Dates: start: 20080201
  4. XIPAMIDE [Concomitant]
     Indication: HYPERTENSION
     Dosage: 20 MG, DAILY (1/D)
     Route: 048
     Dates: start: 20080201, end: 20081016
  5. ACTRAPID HUMAN [Concomitant]
     Indication: TYPE 2 DIABETES MELLITUS
     Dosage: 44 IU, 2/D
     Route: 058
     Dates: start: 20060301
  6. ACTRAPID HUMAN [Concomitant]
     Dosage: 46 IU, 2/D
     Route: 058
     Dates: start: 20060301
  7. ACTRAPID HUMAN [Concomitant]
     Dosage: 32 IU, 2/D
     Route: 058
     Dates: start: 20060301
  8. ALLOPURINOL [Concomitant]
     Indication: HYPERURICAEMIA
     Dosage: 300 MG, DAILY (1/D)
     Route: 048
     Dates: start: 20050101
  9. ATMADISC [Concomitant]
     Indication: CHRONIC OBSTRUCTIVE PULMONARY DISEASE
     Dosage: 1 D/F, 50 UG SALMETEROL AND 100 UG FLUTICASON 2 IN ONE
     Route: 055
     Dates: start: 20050101
  10. CALCIUM [Concomitant]
     Indication: OSTEOPOROSIS
     Dosage: 500 MG, 3/D
     Route: 048
     Dates: start: 20080901
  11. FALITHROM [Concomitant]
     Indication: THROMBOSIS PROPHYLAXIS
     Dosage: 3 MG, DAILY (1/D)
     Route: 048
     Dates: start: 20080301
  12. INSULIN DETEMIR [Concomitant]
     Indication: TYPE 2 DIABETES MELLITUS
     Dosage: 20 IU, DAILY (1/D)AT 11:00
     Route: 058
     Dates: start: 20060301
  13. INSULIN DETEMIR [Concomitant]
     Dosage: 42 IU, DAILY (1/D) AT 22:00
     Route: 058
     Dates: start: 20060301
  14. LEVOTHYROXINE SODIUM [Concomitant]
     Indication: HYPOTHYROIDISM
     Dosage: 25 UG, DAILY (1/D)
     Route: 048
     Dates: start: 20070201
  15. LOCOL [Concomitant]
     Indication: DYSLIPIDAEMIA
     Dosage: 80 MG, DAILY (1/D)
     Route: 048
     Dates: start: 20050101
  16. MAGNESIUM [Concomitant]
     Dosage: 500 MG, DAILY (1/D)
     Route: 048
     Dates: start: 20080901
  17. METOPROLOL TARTRATE [Concomitant]
     Indication: HYPERTENSION
     Dosage: 47.5 MG, 2/D
     Route: 048
     Dates: start: 20040101
  18. NIASPAN [Concomitant]
     Dosage: 500 MG, DAILY (1/D)
     Route: 050
     Dates: start: 20080924, end: 20081017
  19. ROCALTROL [Concomitant]
     Indication: OSTEOPOROSIS
     Dosage: 0.25 UG, 2/D
     Route: 048
     Dates: start: 20000101
  20. SPIRIVA [Concomitant]
     Indication: CHRONIC OBSTRUCTIVE PULMONARY DISEASE
     Dosage: 18 UG, DAILY (1/D)
     Route: 055
     Dates: start: 20050101
  21. ALDACTONE [Concomitant]
     Indication: CARDIAC FAILURE
     Dosage: 25 MG, DAILY (1/D)
     Route: 048
     Dates: start: 20080201

REACTIONS (3)
  - BLOOD SODIUM DECREASED [None]
  - HAEMOGLOBIN DECREASED [None]
  - RENAL FAILURE [None]
